FAERS Safety Report 12267229 (Version 3)
Quarter: 2017Q1

REPORT INFORMATION
  Report Type: Other
  Country: US (occurrence: US)
  Receive Date: 20160414
  Receipt Date: 20170212
  Transmission Date: 20170428
  Serious: Yes (Death)
  Sender: FDA-Public Use
  Company Number: US-ACORDA-ACO_122807_2016

PATIENT
  Age: 63 Year
  Sex: Male

DRUGS (1)
  1. AMPYRA [Suspect]
     Active Substance: DALFAMPRIDINE
     Indication: PRODUCT USED FOR UNKNOWN INDICATION
     Dosage: 10 MG, Q 12 HRS
     Route: 048

REACTIONS (2)
  - Septic shock [Fatal]
  - Infection [Fatal]

NARRATIVE: CASE EVENT DATE: 20160315
